FAERS Safety Report 5696241-6 (Version None)
Quarter: 2008Q2

REPORT INFORMATION
  Report Type: 
  Country: None (occurrence: None)
  Receive Date: 20080407
  Receipt Date: 20080326
  Transmission Date: 20081010
  Serious: Yes (Hospitalization)
  Sender: FDA-Public Use
  Company Number: FR-SANOFI-SYNTHELABO-A02200801011

PATIENT
  Sex: Female
  Weight: 48 kg

DRUGS (3)
  1. ADALAT [Concomitant]
     Indication: DRUG USE FOR UNKNOWN INDICATION
     Dosage: UNK
     Route: 048
  2. CORTANCYL [Concomitant]
     Indication: SYSTEMIC LUPUS ERYTHEMATOSUS
     Route: 048
  3. PLAQUENIL [Suspect]
     Indication: SYSTEMIC LUPUS ERYTHEMATOSUS
     Route: 048
     Dates: end: 20050201

REACTIONS (7)
  - BILE DUCT STENOSIS [None]
  - BILIARY CIRRHOSIS PRIMARY [None]
  - CHOLANGITIS SCLEROSING [None]
  - CHOLESTASIS [None]
  - DRUG EFFECT DECREASED [None]
  - HEPATITIS [None]
  - RASH [None]
